FAERS Safety Report 7564251-X (Version None)
Quarter: 2011Q2

REPORT INFORMATION
  Report Type: 
  Country: None (occurrence: None)
  Receive Date: 20110622
  Receipt Date: 20110608
  Transmission Date: 20111010
  Serious: Yes (Other)
  Sender: FDA-Public Use
  Company Number: PHHY2011BR22350

PATIENT
  Sex: Female

DRUGS (9)
  1. ALLOPURINOL [Concomitant]
     Indication: BLOOD URIC ACID
     Dosage: 1 DF, QD
     Route: 048
  2. ATENOLOL [Concomitant]
     Indication: HYPERTENSION
     Dosage: 1 DF, QD
     Route: 048
  3. ASPIRIN [Concomitant]
     Indication: ANTICOAGULANT THERAPY
     Dosage: 1 DF, QD
     Route: 048
  4. GLYBURIDE [Concomitant]
     Indication: DIABETES MELLITUS
     Dosage: 2 DF, QD
     Route: 048
  5. NIMODIPINE [Concomitant]
     Indication: CARDIOVASCULAR DISORDER
     Dosage: 1 DF, QD
     Route: 048
  6. DIOVAN HCT [Suspect]
     Indication: HYPERTENSION
     Dosage: 160/12.5 MG, ONE TABLET IN THE MORNING AND A HALF TABLET AT NIGHT
     Route: 048
  7. LEXOTAN [Concomitant]
     Dosage: 0.5 DF, QD
     Route: 048
  8. ENALAPRIL MALEATE [Concomitant]
     Indication: HYPERTENSION
     Dosage: 2 DF, QD
     Route: 048
  9. VENALOT (TROXERUTIN/COUMARIN) [Concomitant]
     Indication: CARDIOVASCULAR DISORDER
     Dosage: 1 DF, QD
     Route: 048

REACTIONS (5)
  - FALL [None]
  - FLUID RETENTION [None]
  - HAND FRACTURE [None]
  - HYPERTENSION [None]
  - INCORRECT DOSE ADMINISTERED [None]
